FAERS Safety Report 17026995 (Version 1)
Quarter: 2019Q4

REPORT INFORMATION
  Report Type: Spontaneous
  Country: US (occurrence: US)
  Receive Date: 20191113
  Receipt Date: 20191113
  Transmission Date: 20200122
  Serious: No
  Sender: FDA-Public Use
  Company Number: US-UNICHEM PHARMACEUTICALS (USA) INC-UCM201810-000294

PATIENT
  Age: 69 Year
  Sex: Female
  Weight: 81.6 kg

DRUGS (1)
  1. LAMOTRIGINE. [Suspect]
     Active Substance: LAMOTRIGINE
     Indication: BIPOLAR DISORDER
     Dosage: TAKING HALF OF 100 MG OF MEDICATION(50MG)

REACTIONS (7)
  - Balance disorder [Recovering/Resolving]
  - Thinking abnormal [Recovered/Resolved]
  - Depressed mood [Recovering/Resolving]
  - Mental impairment [Recovered/Resolved]
  - Asthenia [Recovering/Resolving]
  - Wrong technique in product usage process [Unknown]
  - Dysstasia [Unknown]
